FAERS Safety Report 10020666 (Version 1)
Quarter: 2013Q4

REPORT INFORMATION
  Report Type: Spontaneous
  Country: FR (occurrence: None)
  Receive Date: 20131125
  Receipt Date: 20131125
  Transmission Date: 20140711
  Serious: Yes (Hospitalization, Other)
  Sender: FDA-Public Use
  Company Number: JPI-P-010177

PATIENT
  Age: 22 Year
  Sex: Male

DRUGS (4)
  1. XYREM [Suspect]
     Indication: NARCOLEPSY
     Route: 048
     Dates: start: 20100129, end: 20100202
  2. PARACETAMOL W/TRAMADOL HYDROCHLORIDE [Suspect]
     Indication: BACK PAIN
     Dates: start: 201003
  3. MODIDAL (MODAFINIL) [Concomitant]
  4. EFFEXOR (VENLAFAXINE HYDROCHLORIDE) UNKNOWN [Concomitant]

REACTIONS (20)
  - Gastric bypass [None]
  - Cataplexy [None]
  - Chromaturia [None]
  - Drug interaction [None]
  - Peripheral coldness [None]
  - Insomnia [None]
  - Middle insomnia [None]
  - Abdominal pain [None]
  - Nervousness [None]
  - Abnormal behaviour [None]
  - Intentional drug misuse [None]
  - Inappropriate schedule of drug administration [None]
  - Headache [None]
  - Tremor [None]
  - Decreased appetite [None]
  - Hallucination [None]
  - Somnolence [None]
  - Nightmare [None]
  - Memory impairment [None]
  - Somnambulism [None]
